FAERS Safety Report 25305458 (Version 1)
Quarter: 2025Q2

REPORT INFORMATION
  Report Type: Spontaneous
  Country: AR (occurrence: AR)
  Receive Date: 20250513
  Receipt Date: 20250513
  Transmission Date: 20250717
  Serious: Yes (Hospitalization)
  Sender: NOVARTIS
  Company Number: AR-002147023-NVSC2025AR075811

PATIENT
  Age: 69 Year
  Sex: Female

DRUGS (1)
  1. DESFERAL [Suspect]
     Active Substance: DEFEROXAMINE MESYLATE
     Indication: Chronic myeloid leukaemia
     Route: 042
     Dates: start: 2023

REACTIONS (3)
  - Blood iron abnormal [Unknown]
  - Platelet disorder [Unknown]
  - Off label use [Unknown]

NARRATIVE: CASE EVENT DATE: 20250411
